FAERS Safety Report 6787659-9 (Version None)
Quarter: 2010Q2

REPORT INFORMATION
  Report Type: 
  Country: None (occurrence: None)
  Receive Date: 20100623
  Receipt Date: 20040429
  Transmission Date: 20101027
  Serious: No
  Sender: FDA-Public Use
  Company Number: US-PFIZER INC-2007057578

PATIENT
  Sex: Male

DRUGS (1)
  1. ALDACTAZIDE [Suspect]

REACTIONS (1)
  - VITILIGO [None]
